FAERS Safety Report 8202773-9 (Version None)
Quarter: 2012Q1

REPORT INFORMATION
  Report Type: 
  Country: None (occurrence: None)
  Receive Date: 20120312
  Receipt Date: 20120312
  Transmission Date: 20120608
  Serious: Yes (Life-Threatening, Hospitalization, Disabling)
  Sender: FDA-Public Use
  Company Number: None

PATIENT
  Age: 81 Year
  Sex: Female
  Weight: 54.431 kg

DRUGS (2)
  1. BONIVA [Concomitant]
     Dosage: 150MG
     Route: 048
     Dates: start: 20050201, end: 20120201
  2. BONIVA [Suspect]
     Indication: OSTEOPOROSIS PROPHYLAXIS
     Dosage: 150MG
     Route: 048
     Dates: start: 20050201, end: 20120201

REACTIONS (4)
  - PATHOLOGICAL FRACTURE [None]
  - PLEURAL EFFUSION [None]
  - FALL [None]
  - FEMUR FRACTURE [None]
